FAERS Safety Report 5333874-0 (Version None)
Quarter: 2007Q2

REPORT INFORMATION
  Report Type: 
  Country: None (occurrence: None)
  Receive Date: 20070524
  Receipt Date: 20070510
  Transmission Date: 20071010
  Serious: Yes (Hospitalization, Other)
  Sender: FDA-Public Use
  Company Number: US-SHR-US-2006-002247

PATIENT
  Age: 57 Year
  Sex: Female

DRUGS (17)
  1. BETASERON [Suspect]
     Indication: RELAPSING-REMITTING MULTIPLE SCLEROSIS
     Dosage: 8 MIU, EVERY 2D
     Route: 058
     Dates: start: 20050417, end: 20060206
  2. BETASERON [Suspect]
     Dosage: 8 MIU, EVERY 2D
     Route: 058
     Dates: start: 20060211
  3. DEPAKOTE [Concomitant]
     Dosage: 1500 MG/D, 1X/DAY
     Route: 048
  4. DONNATAL [Concomitant]
     Dosage: 1 TAB(S), 2X/DAY
     Route: 048
  5. LASIX [Concomitant]
     Dosage: 80 MG, UNK
     Route: 048
  6. INDERAL LA [Concomitant]
     Indication: MIGRAINE
     Dosage: 1 CAP(S), 1 DOSE
     Route: 048
  7. ZOLOFT [Concomitant]
     Indication: DEPRESSION
     Dosage: 75 MG, HALF A TAB/DAY
     Route: 048
  8. HYDROXYZINE HYDROCHLORIDE [Concomitant]
     Dosage: 25 MG/D, 2X/DAY
     Route: 048
  9. NABUMETONE [Concomitant]
     Dosage: 500 MG, 2X/DAY
     Route: 048
  10. FLOMAX [Concomitant]
     Dosage: .4 MG, UNK
     Route: 048
  11. NEXIUM [Concomitant]
     Dosage: 40 MG, 1X/DAY
     Route: 048
  12. FAMOTIDINE [Concomitant]
     Dosage: 20 MG/D, 1X/DAY
     Route: 048
  13. TIGAN [Concomitant]
     Indication: VOMITING
     Dosage: 200 MG, SUPP, EVERY 6HR AS REQ'D
     Route: 054
  14. SPIROLONE [Concomitant]
     Dosage: 25 MG/D, UNK
     Route: 048
  15. ALBUTEROL [Concomitant]
     Indication: ASTHMA
     Dosage: 2 PUFF, 4X/DAY, PRN
  16. DIAZEPAM [Concomitant]
     Dosage: 10 MG/D, 2X/DAY
     Route: 048
  17. ZYRTEC [Concomitant]
     Dosage: 10 MG/D, 1X/DAY
     Route: 048

REACTIONS (17)
  - ANAEMIA [None]
  - ANTICONVULSANT DRUG LEVEL DECREASED [None]
  - ASTHENIA [None]
  - BLOOD POTASSIUM DECREASED [None]
  - BLOOD PRESSURE IMMEASURABLE [None]
  - BONE PAIN [None]
  - CARDIAC ARREST [None]
  - CONFUSIONAL STATE [None]
  - CONTUSION [None]
  - FALL [None]
  - GRAND MAL CONVULSION [None]
  - HYPOTENSION [None]
  - INFLUENZA [None]
  - LARYNGITIS [None]
  - MYALGIA [None]
  - PULSE ABSENT [None]
  - RESPIRATORY ARREST [None]
